FAERS Safety Report 14589406 (Version 1)
Quarter: 2018Q1

REPORT INFORMATION
  Report Type: Spontaneous
  Country: RO (occurrence: RO)
  Receive Date: 20180302
  Receipt Date: 20180302
  Transmission Date: 20180509
  Serious: Yes (Other)
  Sender: FDA-Public Use
  Company Number: RO-BAUSCH-BL-2018-004912

PATIENT
  Sex: Female

DRUGS (3)
  1. ACETYLSALICYLIC ACID [Suspect]
     Active Substance: ASPIRIN
     Indication: HYPERCOAGULATION
     Route: 064
  2. ENOXAPARIN [Suspect]
     Active Substance: ENOXAPARIN
     Indication: HYPERCOAGULATION
     Route: 064
  3. PENTOXIFYLLINE. [Suspect]
     Active Substance: PENTOXIFYLLINE
     Indication: SEPSIS
     Route: 064

REACTIONS (2)
  - Drug effect incomplete [Unknown]
  - Foetal exposure during pregnancy [Unknown]
